FAERS Safety Report 6260326-6 (Version None)
Quarter: 2009Q3

REPORT INFORMATION
  Report Type: 
  Country: None (occurrence: None)
  Receive Date: 20090708
  Receipt Date: 20090626
  Transmission Date: 20100115
  Serious: Yes (Hospitalization, Other)
  Sender: FDA-Public Use
  Company Number: US-PFIZER INC-2009233593

PATIENT
  Sex: Male
  Weight: 102.4 kg

DRUGS (4)
  1. LYRICA [Suspect]
     Indication: NEURALGIA
     Dosage: 50MG AM; 100MG PM
     Dates: start: 20080101
  2. LYRICA [Suspect]
     Indication: NEUROPATHY PERIPHERAL
  3. LYRICA [Suspect]
     Indication: FIBROMYALGIA
  4. LORTAB [Concomitant]
     Dosage: UNK

REACTIONS (5)
  - BLOOD PRESSURE ABNORMAL [None]
  - CARDIAC FAILURE CONGESTIVE [None]
  - HEART RATE INCREASED [None]
  - MYOCARDIAL INFARCTION [None]
  - WEIGHT INCREASED [None]
